FAERS Safety Report 7276497-9 (Version None)
Quarter: 2011Q1

REPORT INFORMATION
  Report Type: 
  Country: None (occurrence: None)
  Receive Date: 20110131
  Receipt Date: 20110113
  Transmission Date: 20110831
  Serious: Yes (Other)
  Sender: FDA-Public Use
  Company Number: JP-2011-10020

PATIENT
  Age: 61 Year
  Sex: Male
  Weight: 64 kg

DRUGS (6)
  1. DOBUTAMINE HCL [Concomitant]
  2. SAMSCA [Suspect]
     Indication: CARDIAC FAILURE
     Dosage: 7.5 MG MILLIGRAM(S), QD, ORAL; 15 MG MILLIGRAM(S), QD, ORAL;
     Route: 048
     Dates: start: 20110106, end: 20110110
  3. SAMSCA [Suspect]
     Indication: CARDIAC FAILURE
     Dosage: 7.5 MG MILLIGRAM(S), QD, ORAL; 15 MG MILLIGRAM(S), QD, ORAL;
     Route: 048
     Dates: start: 20110105, end: 20110105
  4. MILRINONE [Concomitant]
  5. LASIX [Concomitant]
  6. ALDACTONE [Concomitant]

REACTIONS (5)
  - ALTERED STATE OF CONSCIOUSNESS [None]
  - BLOOD SODIUM INCREASED [None]
  - PYREXIA [None]
  - DELIRIUM [None]
  - HALLUCINATION, VISUAL [None]
